FAERS Safety Report 23869006 (Version 1)
Quarter: 2024Q2

REPORT INFORMATION
  Report Type: Spontaneous
  Country: US (occurrence: US)
  Receive Date: 20240517
  Receipt Date: 20240517
  Transmission Date: 20240715
  Serious: Yes (Death, Other)
  Sender: FDA-Public Use
  Company Number: US-BRISTOL-MYERS SQUIBB COMPANY-2024-075883

PATIENT
  Age: 61 Year
  Sex: Male

DRUGS (12)
  1. POMALYST [Suspect]
     Active Substance: POMALIDOMIDE
     Indication: Plasma cell myeloma
     Dosage: DAILY ON DAYS 1-14 AND THEN 7 DAYS OFF
     Route: 048
     Dates: start: 20240201, end: 202403
  2. POMALYST [Suspect]
     Active Substance: POMALIDOMIDE
     Dosage: ON DAYS 1-14 AND THEN 7 DAYS OFF
     Route: 048
     Dates: start: 20240201, end: 202403
  3. ACYCLOVIR [Concomitant]
     Active Substance: ACYCLOVIR
  4. ADVAIR HFA [Concomitant]
     Active Substance: FLUTICASONE PROPIONATE\SALMETEROL XINAFOATE
  5. ALBUTEROL [Concomitant]
     Active Substance: ALBUTEROL
  6. ALLOPURINOL [Concomitant]
     Active Substance: ALLOPURINOL
  7. ARANESP [Concomitant]
     Active Substance: DARBEPOETIN ALFA
  8. CALCIUM\VITAMIN D [Concomitant]
     Active Substance: CALCIUM\VITAMIN D
  9. FUROSEMIDE [Concomitant]
     Active Substance: FUROSEMIDE
  10. NITROGLYCERIN [Concomitant]
     Active Substance: NITROGLYCERIN
  11. OMEPRAZOLE [Concomitant]
     Active Substance: DONEPEZIL HYDROCHLORIDE\OMEPRAZOLE\OMEPRAZOLE MAGNESIUM
  12. PRAVASTATIN [Concomitant]
     Active Substance: PRAVASTATIN

REACTIONS (2)
  - Death [Fatal]
  - Off label use [Unknown]

NARRATIVE: CASE EVENT DATE: 20240513
